FAERS Safety Report 11854767 (Version 2)
Quarter: 2016Q1

REPORT INFORMATION
  Report Type: Spontaneous
  Country: US (occurrence: US)
  Receive Date: 20151221
  Receipt Date: 20160330
  Transmission Date: 20160526
  Serious: Yes (Disabling)
  Sender: FDA-Public Use
  Company Number: US-CELGENEUS-USA-2015121407

PATIENT
  Sex: Male

DRUGS (2)
  1. THALOMID [Suspect]
     Active Substance: THALIDOMIDE
     Indication: STOMATITIS
     Dosage: 100 MILLIGRAM
     Route: 048
     Dates: start: 20151112, end: 20151120
  2. THALOMID [Suspect]
     Active Substance: THALIDOMIDE
     Indication: BEHCET^S SYNDROME

REACTIONS (2)
  - Glossitis [Not Recovered/Not Resolved]
  - Dysstasia [Not Recovered/Not Resolved]
